FAERS Safety Report 7178987-6 (Version None)
Quarter: 2010Q4

REPORT INFORMATION
  Report Type: 
  Country: None (occurrence: None)
  Receive Date: 20101221
  Receipt Date: 20101208
  Transmission Date: 20110411
  Serious: Yes (Other)
  Sender: FDA-Public Use
  Company Number: PHHY2010IT84069

PATIENT
  Sex: Male

DRUGS (1)
  1. EXJADE [Suspect]
     Indication: THALASSAEMIA BETA
     Dosage: 875 MG/DAY
     Route: 048
     Dates: start: 20101118, end: 20101123

REACTIONS (2)
  - HYPERBILIRUBINAEMIA [None]
  - JAUNDICE [None]
